FAERS Safety Report 8141814-4 (Version None)
Quarter: 2012Q1

REPORT INFORMATION
  Report Type: 
  Country: None (occurrence: None)
  Receive Date: 20120216
  Receipt Date: 20120210
  Transmission Date: 20120608
  Serious: Yes (Life-Threatening)
  Sender: FDA-Public Use
  Company Number: IT-ELI_LILLY_AND_COMPANY-IT201202002841

PATIENT
  Sex: Female

DRUGS (1)
  1. ALIMTA [Suspect]
     Indication: LUNG ADENOCARCINOMA METASTATIC
     Dosage: 900 MG, PER CYCLE
     Route: 042
     Dates: start: 20110908, end: 20111230

REACTIONS (2)
  - GENERALISED OEDEMA [None]
  - DYSPNOEA [None]
